FAERS Safety Report 7516309-9 (Version None)
Quarter: 2011Q2

REPORT INFORMATION
  Report Type: 
  Country: None (occurrence: None)
  Receive Date: 20110601
  Receipt Date: 20110530
  Transmission Date: 20111010
  Serious: Yes (Death)
  Sender: FDA-Public Use
  Company Number: PHHO2011TR06573

PATIENT
  Sex: Male

DRUGS (2)
  1. EVEROLIMUS [Suspect]
     Indication: METASTATIC RENAL CELL CARCINOMA
     Dosage: 10 MG, DAILY
     Route: 048
  2. EVEROLIMUS [Suspect]
     Dosage: 5 MG, DAILY

REACTIONS (3)
  - METASTASES TO LIVER [None]
  - NEOPLASM MALIGNANT [None]
  - HEPATIC FAILURE [None]
